FAERS Safety Report 12422701 (Version 1)
Quarter: 2016Q2

REPORT INFORMATION
  Report Type: Report from Study
  Country: US (occurrence: NL)
  Receive Date: 20160601
  Receipt Date: 20160601
  Transmission Date: 20160815
  Serious: Yes (Other)
  Sender: FDA-Public Use
  Company Number: US-ASTRAZENECA-2016SE55874

PATIENT
  Age: 42 Year
  Sex: Male

DRUGS (4)
  1. BUDESONIDE/FORMOTEROL [Suspect]
     Active Substance: BUDESONIDE\FORMOTEROL
     Indication: ASTHMA
     Route: 055
  2. PAROXETINE. [Interacting]
     Active Substance: PAROXETINE
     Indication: EMOTIONAL DISTRESS
     Route: 065
  3. ALCOHOL. [Interacting]
     Active Substance: ALCOHOL
     Dosage: 12 GLASSES OF BEER
     Route: 048
  4. PAROXETINE. [Interacting]
     Active Substance: PAROXETINE
     Indication: EMOTIONAL DISTRESS
     Dosage: 40.0MG ONCE/SINGLE ADMINISTRATION
     Route: 065

REACTIONS (4)
  - Intentional product misuse [Unknown]
  - Physical assault [Unknown]
  - Drug interaction [Unknown]
  - Homicide [Unknown]
